FAERS Safety Report 18175760 (Version 1)
Quarter: 2020Q3

REPORT INFORMATION
  Report Type: Spontaneous
  Country: US (occurrence: US)
  Receive Date: 20200820
  Receipt Date: 20200820
  Transmission Date: 20201103
  Serious: Yes (Life-Threatening, Hospitalization, Other)
  Sender: FDA-Public Use
  Company Number: US-AMGEN-USASP2020130164

PATIENT
  Age: 42 Year
  Sex: Female

DRUGS (10)
  1. PIPERACILLIN AND TAZOBACTAM [Concomitant]
     Active Substance: PIPERACILLIN SODIUM\TAZOBACTAM SODIUM
  2. SEVELAMER [Concomitant]
     Active Substance: SEVELAMER
     Dosage: 800 MILLIGRAM, TID
  3. LINEZOLID. [Concomitant]
     Active Substance: LINEZOLID
  4. LEVOFLOXACIN. [Concomitant]
     Active Substance: LEVOFLOXACIN
  5. CINACALCET HCL [Suspect]
     Active Substance: CINACALCET HYDROCHLORIDE
     Indication: HYPERPARATHYROIDISM
     Dosage: 120 MILLIGRAM, QD
     Route: 065
     Dates: start: 2018
  6. CALCITRIOL. [Concomitant]
     Active Substance: CALCITRIOL
     Dosage: 1 MICROGRAM, BID
  7. CALCIUM CITRATE WITH VITAMIN D [Concomitant]
     Active Substance: CALCIUM CITRATE\VITAMIN D
     Dosage: 315/250 MILLIGRAM, QID
  8. CALCIUM GLUCONATE. [Concomitant]
     Active Substance: CALCIUM GLUCONATE
     Dosage: 150 MILLILITER, QH
  9. SODIUM THIOSULFATE [Concomitant]
     Active Substance: SODIUM THIOSULFATE
     Dosage: UNK
  10. METRONIDAZOLE. [Concomitant]
     Active Substance: METRONIDAZOLE

REACTIONS (3)
  - Hyperparathyroidism tertiary [Recovered/Resolved]
  - Hungry bone syndrome [Recovered/Resolved]
  - Calciphylaxis [Recovered/Resolved]

NARRATIVE: CASE EVENT DATE: 2018
